FAERS Safety Report 6767443-2 (Version None)
Quarter: 2010Q2

REPORT INFORMATION
  Report Type: 
  Country: None (occurrence: None)
  Receive Date: 20100614
  Receipt Date: 20100531
  Transmission Date: 20101027
  Serious: Yes (Other)
  Sender: FDA-Public Use
  Company Number: PHHY2010BR35388

PATIENT
  Sex: Male

DRUGS (1)
  1. DIOVAN [Suspect]
     Dosage: 1 TABLET (320 MG) DAILY
     Route: 048

REACTIONS (3)
  - BLOOD PRESSURE DECREASED [None]
  - DIABETES MELLITUS [None]
  - WEIGHT DECREASED [None]
